FAERS Safety Report 4930746-8 (Version None)
Quarter: 2006Q1

REPORT INFORMATION
  Report Type: 
  Country: None (occurrence: None)
  Receive Date: 20060227
  Receipt Date: 20060214
  Transmission Date: 20060701
  Serious: Yes (Other)
  Sender: FDA-Public Use
  Company Number: 2006022067

PATIENT
  Age: 78 Year
  Sex: Female
  Weight: 72.5755 kg

DRUGS (7)
  1. DETROL LA [Suspect]
     Indication: URINARY INCONTINENCE
     Dosage: 4 MG (4 MG, 1 IN 1 D), ORAL
     Route: 048
  2. HYDROCHLOROTHIAZIDE [Concomitant]
  3. POTASSIUM (POTASSIUM) [Concomitant]
  4. CALCIUM (CALCIUM) [Concomitant]
  5. VITAMIN D [Concomitant]
  6. TAMOXIFEN CITRATE [Concomitant]
  7. PRINIVIL [Concomitant]

REACTIONS (5)
  - BREAST CANCER FEMALE [None]
  - CONDITION AGGRAVATED [None]
  - CONSTIPATION [None]
  - STRESS INCONTINENCE [None]
  - URINARY INCONTINENCE [None]
